FAERS Safety Report 22103148 (Version 1)
Quarter: 2023Q1

REPORT INFORMATION
  Report Type: Report from Study
  Country: BR (occurrence: BR)
  Receive Date: 20230316
  Receipt Date: 20230316
  Transmission Date: 20230418
  Serious: Yes (Other)
  Sender: FDA-Public Use
  Company Number: BR-002147023-NVSC2023BR056978

PATIENT
  Sex: Female

DRUGS (1)
  1. OMNITROPE [Suspect]
     Active Substance: SOMATROPIN
     Indication: Product used for unknown indication
     Dosage: UNK (2,1 DOSE WAS USED), (6 TIMES PER WEEK)
     Route: 065
     Dates: start: 202109

REACTIONS (2)
  - Wrong patient received product [Not Recovered/Not Resolved]
  - Device defective [Not Recovered/Not Resolved]
